FAERS Safety Report 22654181 (Version 1)
Quarter: 2023Q2

REPORT INFORMATION
  Report Type: Report from Study
  Country: CO (occurrence: CO)
  Receive Date: 20230629
  Receipt Date: 20230629
  Transmission Date: 20230722
  Serious: Yes (Hospitalization, Other)
  Sender: FDA-Public Use
  Company Number: CO-ABBVIE-5307194

PATIENT
  Age: 35 Year
  Sex: Female
  Weight: 80 kg

DRUGS (1)
  1. HUMIRA [Suspect]
     Active Substance: ADALIMUMAB
     Indication: Hidradenitis
     Route: 058
     Dates: start: 20210420, end: 20230420

REACTIONS (7)
  - Tracheal obstruction [Recovering/Resolving]
  - Dyspnoea [Recovered/Resolved]
  - Immunodeficiency [Not Recovered/Not Resolved]
  - Pulmonary tuberculosis [Recovering/Resolving]
  - Lymph node pain [Recovered/Resolved]
  - Lymphadenitis [Recovering/Resolving]
  - Lymph node pain [Unknown]

NARRATIVE: CASE EVENT DATE: 20230301
